FAERS Safety Report 7442982-X (Version None)
Quarter: 2011Q2

REPORT INFORMATION
  Report Type: 
  Country: None (occurrence: None)
  Receive Date: 20110425
  Receipt Date: 20110425
  Transmission Date: 20111010
  Serious: Yes (Congenital Anomaly)
  Sender: FDA-Public Use
  Company Number: None

PATIENT
  Age: 0 Month
  Sex: Female
  Weight: 2.8 kg

DRUGS (1)
  1. METROGEL [Suspect]
     Indication: DIARRHOEA
     Dosage: PO
     Route: 048
     Dates: start: 19980729, end: 19980812

REACTIONS (2)
  - CONGENITAL BRAIN DAMAGE [None]
  - DRUG EXPOSURE DURING PREGNANCY [None]
